FAERS Safety Report 17245389 (Version 1)
Quarter: 2020Q1

REPORT INFORMATION
  Report Type: Spontaneous
  Country: US (occurrence: US)
  Receive Date: 20200108
  Receipt Date: 20200108
  Transmission Date: 20200409
  Serious: Yes (Hospitalization, Other)
  Sender: FDA-Public Use
  Company Number: US-ALEMBIC PHARMACUETICALS LIMITED-2019SCAL001022

PATIENT

DRUGS (4)
  1. ACETAZOLAMIDE. [Suspect]
     Active Substance: ACETAZOLAMIDE
     Indication: PRODUCT USED FOR UNKNOWN INDICATION
     Dosage: UNK
     Route: 064
  2. QUETIAPINE FUMARATE. [Suspect]
     Active Substance: QUETIAPINE FUMARATE
     Indication: PRODUCT USED FOR UNKNOWN INDICATION
     Dosage: UNK
     Route: 064
  3. AMPICILLIN [Concomitant]
     Active Substance: AMPICILLIN
     Indication: PROPHYLAXIS
     Dosage: UNK
  4. GENTAMICIN. [Concomitant]
     Active Substance: GENTAMICIN
     Indication: PROPHYLAXIS
     Dosage: UNK

REACTIONS (9)
  - Neonatal respiratory distress [Recovered/Resolved]
  - Use of accessory respiratory muscles [Recovered/Resolved]
  - Foetal exposure during pregnancy [Unknown]
  - Exposure via breast milk [Unknown]
  - Neurological decompensation [Recovered/Resolved]
  - Nasal flaring [Recovered/Resolved]
  - Metabolic acidosis [Recovered/Resolved]
  - Neonatal tachypnoea [Recovered/Resolved]
  - Grunting [Recovered/Resolved]
